FAERS Safety Report 10204606 (Version 1)
Quarter: 2014Q2

REPORT INFORMATION
  Report Type: Spontaneous
  Country: US (occurrence: None)
  Receive Date: 20140527
  Receipt Date: 20140527
  Transmission Date: 20141212
  Serious: Yes (Other)
  Sender: FDA-Public Use
  Company Number: None

PATIENT
  Age: 72 Year
  Sex: Female
  Weight: 60.78 kg

DRUGS (1)
  1. PROLIA [Suspect]
     Indication: OSTEOPOROSIS
     Dosage: 02/07/2014; ONE TIME, 1 SHOT, ONCE, SHOT IN ARM
     Dates: start: 20140207

REACTIONS (5)
  - Cough [None]
  - Night sweats [None]
  - Pain in extremity [None]
  - Groin pain [None]
  - Gait disturbance [None]
